FAERS Safety Report 12613710 (Version 2)
Quarter: 2016Q3

REPORT INFORMATION
  Report Type: Other
  Country: GB (occurrence: GB)
  Receive Date: 20160802
  Receipt Date: 20160810
  Transmission Date: 20161109
  Serious: Yes (Other)
  Sender: FDA-Public Use
  Company Number: GB-PFM-GB-2016-2285

PATIENT
  Sex: Male

DRUGS (2)
  1. VINORELBINE INN [Suspect]
     Active Substance: VINORELBINE TARTRATE
     Indication: NON-SMALL CELL LUNG CANCER
     Dosage: UNK
     Route: 065
     Dates: start: 2015
  2. CISPLATIN. [Suspect]
     Active Substance: CISPLATIN
     Indication: NON-SMALL CELL LUNG CANCER
     Dosage: UNK
     Route: 065
     Dates: start: 2015

REACTIONS (6)
  - Thrombosis [Unknown]
  - Diarrhoea [Unknown]
  - Tumour flare [Unknown]
  - Disease progression [Unknown]
  - Pulmonary embolism [Unknown]
  - Mobility decreased [Unknown]

NARRATIVE: CASE EVENT DATE: 2015
